FAERS Safety Report 4762573-9 (Version None)
Quarter: 2005Q3

REPORT INFORMATION
  Report Type: 
  Country: None (occurrence: None)
  Receive Date: 20050826
  Receipt Date: 20050330
  Transmission Date: 20060218
  Serious: Yes (Death, Other)
  Sender: FDA-Public Use
  Company Number: USA-2005-0019591

PATIENT
  Age: 19 Year
  Sex: Female

DRUGS (6)
  1. OXYCONTIN [Suspect]
  2. IBUPROFEN [Suspect]
  3. EPHEDRIN (EPHEDRINE HYDROCHLORIDE) [Suspect]
  4. NICOTINE [Suspect]
  5. ALCOHOL (ETHANOL) [Suspect]
  6. MARIJUANA (CANNABIS) [Suspect]

REACTIONS (5)
  - DRUG ABUSER [None]
  - LOSS OF CONSCIOUSNESS [None]
  - NAUSEA [None]
  - OVERDOSE [None]
  - POLYSUBSTANCE ABUSE [None]
